FAERS Safety Report 5955089-5 (Version None)
Quarter: 2008Q4

REPORT INFORMATION
  Report Type: 
  Country: None (occurrence: None)
  Receive Date: 20081117
  Receipt Date: 20081112
  Transmission Date: 20090506
  Serious: Yes (Other)
  Sender: FDA-Public Use
  Company Number: B0546589A

PATIENT
  Age: 48 Year
  Sex: Male

DRUGS (3)
  1. ADEFOVIR DIPIVOXIL KIT [Suspect]
     Indication: HEPATITIS B
     Dosage: 10MG PER DAY
     Route: 048
     Dates: start: 20040310
  2. LAMIVUDINE [Suspect]
     Indication: HEPATITIS B
  3. PROPRANOLOL HYDROCHLORIDE [Concomitant]
     Dates: start: 20070301

REACTIONS (1)
  - HEPATIC NEOPLASM MALIGNANT [None]
